FAERS Safety Report 11385452 (Version 1)
Quarter: 2015Q3

REPORT INFORMATION
  Report Type: Report from Study
  Country: US (occurrence: US)
  Receive Date: 20150815
  Receipt Date: 20150815
  Transmission Date: 20151125
  Serious: Yes (Hospitalization, Other)
  Sender: FDA-Public Use
  Company Number: US-ABBVIE-15K-163-1441665-00

PATIENT
  Age: 59 Year
  Sex: Female
  Weight: 74.91 kg

DRUGS (11)
  1. HUMIRA [Suspect]
     Active Substance: ADALIMUMAB
     Route: 058
     Dates: start: 2009, end: 201407
  2. NAPROXEN. [Concomitant]
     Active Substance: NAPROXEN
     Indication: RHEUMATOID ARTHRITIS
  3. HUMIRA [Suspect]
     Active Substance: ADALIMUMAB
     Indication: RHEUMATOID ARTHRITIS
     Route: 058
     Dates: start: 2005, end: 2009
  4. HUMIRA [Suspect]
     Active Substance: ADALIMUMAB
     Route: 058
     Dates: start: 201409, end: 201507
  5. GABAPENTIN. [Concomitant]
     Active Substance: GABAPENTIN
     Indication: POST CONCUSSION SYNDROME
  6. GABAPENTIN. [Concomitant]
     Active Substance: GABAPENTIN
     Indication: TINNITUS
  7. BUPROPION. [Concomitant]
     Active Substance: BUPROPION
     Indication: ATTENTION DEFICIT/HYPERACTIVITY DISORDER
  8. BUPROPION. [Concomitant]
     Active Substance: BUPROPION
     Indication: ANXIETY
  9. ADDERALL [Concomitant]
     Active Substance: AMPHETAMINE ASPARTATE\AMPHETAMINE SULFATE\DEXTROAMPHETAMINE SACCHARATE\DEXTROAMPHETAMINE SULFATE
     Indication: ATTENTION DEFICIT/HYPERACTIVITY DISORDER
  10. CYMBALTA [Concomitant]
     Active Substance: DULOXETINE HYDROCHLORIDE
     Indication: ANXIETY
  11. LEXAPRO [Concomitant]
     Active Substance: ESCITALOPRAM OXALATE
     Indication: ANXIETY

REACTIONS (11)
  - Abdominal adhesions [Recovered/Resolved]
  - Rash erythematous [Not Recovered/Not Resolved]
  - Rash pustular [Not Recovered/Not Resolved]
  - Blood pressure decreased [Recovered/Resolved]
  - Peritonitis [Recovered/Resolved]
  - Injection site pain [Not Recovered/Not Resolved]
  - Tooth extraction [Recovered/Resolved]
  - Appendicitis perforated [Recovered/Resolved]
  - Pallor [Recovered/Resolved]
  - Weight increased [Not Recovered/Not Resolved]
  - Intestinal obstruction [Recovered/Resolved]

NARRATIVE: CASE EVENT DATE: 2013
